FAERS Safety Report 10495332 (Version 1)
Quarter: 2014Q3

REPORT INFORMATION
  Report Type: Spontaneous
  Country: US (occurrence: None)
  Receive Date: 20140815
  Receipt Date: 20140815
  Transmission Date: 20150326
  Serious: Yes (Other)
  Sender: FDA-Public Use
  Company Number: ADR-2014-00371

PATIENT
  Age: 65 Year
  Sex: Female

DRUGS (3)
  1. BACLOFEN INTRATHECAL 2000 MCG/ML (CANGENE) [Suspect]
     Active Substance: BACLOFEN
     Indication: MUSCLE SPASTICITY
     Dosage: 559.84 MCG/DAY
  2. MARCAINE [Suspect]
     Active Substance: BUPIVACAINE HYDROCHLORIDE
     Dosage: 22.5 MG/DAY
  3. MORPHINE [Suspect]
     Active Substance: MORPHINE
     Dosage: 6.998MG/DAY

REACTIONS (1)
  - Drug withdrawal syndrome [None]
